FAERS Safety Report 5274134-6 (Version None)
Quarter: 2007Q1

REPORT INFORMATION
  Report Type: 
  Country: None (occurrence: None)
  Receive Date: 20070323
  Receipt Date: 20070315
  Transmission Date: 20070707
  Serious: Yes (Hospitalization)
  Sender: FDA-Public Use
  Company Number: IT-ABBOTT-07P-083-0361304-00

PATIENT
  Sex: Female
  Weight: 65 kg

DRUGS (4)
  1. HUMIRA [Suspect]
     Indication: RHEUMATOID ARTHRITIS
     Route: 058
     Dates: start: 20060131, end: 20061017
  2. HUMIRA [Suspect]
     Route: 058
     Dates: start: 20050327, end: 20051212
  3. HUMIRA [Suspect]
     Route: 058
     Dates: start: 20061115
  4. LEFLUNOMIDE [Concomitant]
     Indication: RHEUMATOID ARTHRITIS

REACTIONS (2)
  - ADENOMYOSIS [None]
  - METRORRHAGIA [None]
